FAERS Safety Report 9464908 (Version 2)
Quarter: 2015Q1

REPORT INFORMATION
  Report Type: Spontaneous
  Country: CA (occurrence: CA)
  Receive Date: 20130819
  Receipt Date: 20150201
  Transmission Date: 20150721
  Serious: Yes (Hospitalization)
  Sender: FDA-Public Use
  Company Number: CA-ROCHE-1262440

PATIENT
  Age: 8 Year
  Sex: Male

DRUGS (8)
  1. CYCLOSPORINE. [Suspect]
     Active Substance: CYCLOSPORINE
     Dosage: THERAPY DURATION: 736.0 DAYS
     Route: 042
  2. METHYLPREDNISOLONE SODIUM SUCCINATE. [Suspect]
     Active Substance: METHYLPREDNISOLONE SODIUM SUCCINATE
     Indication: PRODUCT USED FOR UNKNOWN INDICATION
     Route: 065
  3. CELLCEPT [Suspect]
     Active Substance: MYCOPHENOLATE MOFETIL\MYCOPHENOLATE MOFETIL HYDROCHLORIDE
     Indication: PRODUCT USED FOR UNKNOWN INDICATION
     Dosage: THERAPY DURATION: 3.0 MONTHS
     Route: 065
  4. REMICADE [Concomitant]
     Active Substance: INFLIXIMAB
     Route: 065
  5. CYCLOSPORINE. [Suspect]
     Active Substance: CYCLOSPORINE
     Indication: PRODUCT USED FOR UNKNOWN INDICATION
     Dosage: THERAPY DURATION: 6.0 DAYS
     Route: 042
  6. TACROLIMUS. [Concomitant]
     Active Substance: TACROLIMUS
     Route: 065
  7. DACLIZUMAB [Concomitant]
     Active Substance: DACLIZUMAB
     Route: 065
  8. CYCLOPHOSPHAMIDE. [Concomitant]
     Active Substance: CYCLOPHOSPHAMIDE
     Route: 065

REACTIONS (15)
  - Intestinal obstruction [Recovered/Resolved]
  - Abdominal pain [Recovered/Resolved]
  - Acute graft versus host disease in intestine [Recovered/Resolved]
  - Intussusception [Recovered/Resolved]
  - Abdominal cavity drainage [Recovered/Resolved]
  - Enteritis [Recovered/Resolved]
  - Intestinal ischaemia [Recovered/Resolved]
  - Intestinal resection [Recovered/Resolved]
  - Intestinal stenosis [Recovered/Resolved]
  - Ileus [Recovered/Resolved]
  - Intestinal ulcer [Recovered/Resolved]
  - Drug ineffective [Unknown]
  - Mucous stools [Recovered/Resolved]
  - Diarrhoea haemorrhagic [Recovered/Resolved]
  - Gastrointestinal disorder [Recovered/Resolved]
